FAERS Safety Report 17824898 (Version 4)
Quarter: 2020Q2

REPORT INFORMATION
  Report Type: Spontaneous
  Country: US (occurrence: US)
  Receive Date: 20200526
  Receipt Date: 20200609
  Transmission Date: 20200714
  Serious: Yes (Hospitalization, Other)
  Sender: FDA-Public Use
  Company Number: US-SA-2020SA056420

PATIENT

DRUGS (1)
  1. CAPRELSA [Suspect]
     Active Substance: VANDETANIB
     Indication: THYROID CANCER
     Dosage: 300 MG, QD
     Route: 048
     Dates: start: 20191221, end: 20200527

REACTIONS (8)
  - Blood pressure increased [Unknown]
  - Hospitalisation [Unknown]
  - Syncope [Unknown]
  - Dizziness [Unknown]
  - Dyspnoea [Unknown]
  - Solar dermatitis [Unknown]
  - Parosmia [Unknown]
  - Rash pruritic [Unknown]
